FAERS Safety Report 7716107-7 (Version None)
Quarter: 2011Q3

REPORT INFORMATION
  Report Type: 
  Country: None (occurrence: None)
  Receive Date: 20110823
  Receipt Date: 20110809
  Transmission Date: 20111222
  Serious: Yes (Other)
  Sender: FDA-Public Use
  Company Number: 2011MA011868

PATIENT
  Age: 23 Year
  Sex: Female

DRUGS (1)
  1. TRAMADOL HYDROCHLORIDE [Suspect]
     Indication: BACK PAIN
     Dosage: 50 MG;QID;PO
     Route: 048
     Dates: start: 20110610, end: 20110610

REACTIONS (4)
  - HYPOTHERMIA [None]
  - DRY MOUTH [None]
  - DYSGEUSIA [None]
  - NIGHTMARE [None]
